FAERS Safety Report 6276452-1 (Version None)
Quarter: 2009Q3

REPORT INFORMATION
  Report Type: 
  Country: None (occurrence: None)
  Receive Date: 20090717
  Receipt Date: 20090717
  Transmission Date: 20100115
  Serious: No
  Sender: FDA-Public Use
  Company Number: None

PATIENT
  Age: 27 Year
  Sex: Male
  Weight: 78.9 kg

DRUGS (1)
  1. VENLAFAXINE HYDROCHLORIDE [Suspect]
     Dosage: 1 TAB BID PO
     Route: 048
     Dates: start: 20090406, end: 20090413

REACTIONS (1)
  - BLOOD CREATINE PHOSPHOKINASE INCREASED [None]
